FAERS Safety Report 10585447 (Version 1)
Quarter: 2014Q4

REPORT INFORMATION
  Report Type: Spontaneous
  Country: US (occurrence: US)
  Receive Date: 20141114
  Receipt Date: 20141114
  Transmission Date: 20150529
  Serious: No
  Sender: FDA-Public Use
  Company Number: US-GLAXOSMITHKLINE-US2014GSK021613

PATIENT
  Age: 59 Year
  Sex: Female

DRUGS (10)
  1. VENTOLIN HFA [Suspect]
     Active Substance: ALBUTEROL SULFATE
     Indication: SARCOIDOSIS
     Dosage: 2 PUFF(S), BID
     Route: 055
  2. VENTOLIN HFA [Suspect]
     Active Substance: ALBUTEROL SULFATE
     Indication: EMPHYSEMA
  3. NEBULIZER (NAME UNKNOWN) [Concomitant]
  4. METHAMPHETAMINE [Suspect]
     Active Substance: METHAMPHETAMINE
     Indication: PRODUCT USED FOR UNKNOWN INDICATION
     Dosage: UNK, U
  5. DALIRESP [Concomitant]
     Active Substance: ROFLUMILAST
  6. PAIN MEDICATIONS [Concomitant]
     Active Substance: UNSPECIFIED INGREDIENT
  7. ESTROGEN [Concomitant]
     Active Substance: ESTRONE\SUS SCROFA OVARY
  8. PAXIL [Concomitant]
     Active Substance: PAROXETINE HYDROCHLORIDE
  9. VENTOLIN HFA [Suspect]
     Active Substance: ALBUTEROL SULFATE
     Indication: CHRONIC OBSTRUCTIVE PULMONARY DISEASE
     Dosage: 2 PUFF(S), QID
     Route: 055
  10. XANAX [Suspect]
     Active Substance: ALPRAZOLAM
     Indication: PRODUCT USED FOR UNKNOWN INDICATION
     Dosage: UNK, U
     Route: 065

REACTIONS (17)
  - Cyanosis [Not Recovered/Not Resolved]
  - Glossodynia [Unknown]
  - Bone pain [Unknown]
  - Oral fungal infection [Unknown]
  - Dysuria [Not Recovered/Not Resolved]
  - Hyperhidrosis [Unknown]
  - Drug abuse [Unknown]
  - Tremor [Unknown]
  - Drug withdrawal syndrome [Recovered/Resolved]
  - Malaise [Not Recovered/Not Resolved]
  - Oral pain [Unknown]
  - Thermal burn [Unknown]
  - Oropharyngeal pain [Unknown]
  - Gingival atrophy [Not Recovered/Not Resolved]
  - Stomatitis [Not Recovered/Not Resolved]
  - Oral disorder [Not Recovered/Not Resolved]
  - Gingival disorder [Not Recovered/Not Resolved]

NARRATIVE: CASE EVENT DATE: 20141102
